FAERS Safety Report 6812852-6 (Version None)
Quarter: 2010Q3

REPORT INFORMATION
  Report Type: 
  Country: None (occurrence: None)
  Receive Date: 20100701
  Receipt Date: 20100621
  Transmission Date: 20110219
  Serious: Yes (Other)
  Sender: FDA-Public Use
  Company Number: US-MILLENNIUM PHARMACEUTICALS, INC.-2010-03196

PATIENT

DRUGS (5)
  1. VELCADE [Suspect]
     Indication: NON-SMALL CELL LUNG CANCER
     Dosage: 1.0 MG/M2, CYCLIC
     Route: 040
  2. VELCADE [Suspect]
     Dosage: 1.3 MG/M2, CYCLIC
     Route: 040
  3. GEMCITABINE HYDROCHLORIDE [Suspect]
     Indication: NON-SMALL CELL LUNG CANCER
     Dosage: 800 MG/M2, CYCLIC
     Route: 041
  4. GEMCITABINE HYDROCHLORIDE [Suspect]
     Dosage: 1000 UNK, CYCLIC
     Route: 041
  5. CARBOPLATIN [Suspect]
     Indication: NON-SMALL CELL LUNG CANCER
     Dosage: UNK
     Route: 041

REACTIONS (1)
  - HAEMORRHAGE [None]
